FAERS Safety Report 4733702-8 (Version None)
Quarter: 2005Q3

REPORT INFORMATION
  Report Type: 
  Country: None (occurrence: None)
  Receive Date: 20050729
  Receipt Date: 20050721
  Transmission Date: 20060218
  Serious: Yes (Other)
  Sender: FDA-Public Use
  Company Number: 028-20785-04010668

PATIENT
  Age: 75 Year
  Sex: Female

DRUGS (23)
  1. THALOMID [Suspect]
     Indication: MULTIPLE MYELOMA
     Dosage: SEE IMAGE
     Route: 048
     Dates: start: 20020801, end: 20020901
  2. THALOMID [Suspect]
     Indication: MULTIPLE MYELOMA
     Dosage: SEE IMAGE
     Route: 048
     Dates: start: 20020901, end: 20021101
  3. THALOMID [Suspect]
     Indication: MULTIPLE MYELOMA
     Dosage: SEE IMAGE
     Route: 048
     Dates: start: 20021101, end: 20030101
  4. THALOMID [Suspect]
     Indication: MULTIPLE MYELOMA
     Dosage: SEE IMAGE
     Route: 048
     Dates: start: 20030101, end: 20040101
  5. THALOMID [Suspect]
     Indication: MULTIPLE MYELOMA
     Dosage: SEE IMAGE
     Route: 048
     Dates: start: 20040101, end: 20041101
  6. THALOMID [Suspect]
     Indication: MULTIPLE MYELOMA
     Dosage: SEE IMAGE
     Route: 048
     Dates: start: 20041101
  7. THALOMID [Suspect]
     Indication: MULTIPLE MYELOMA
     Dosage: SEE IMAGE
     Route: 048
     Dates: start: 20041201
  8. THALOMID [Suspect]
     Indication: MULTIPLE MYELOMA
     Dosage: SEE IMAGE
     Route: 048
     Dates: start: 20050101
  9. PAMIDRONATE DISODIUM [Concomitant]
  10. FENTANYL CITRATE [Concomitant]
  11. ENALAPRIL MALEATE [Concomitant]
  12. OMEPRAZOLE [Concomitant]
  13. PREDNISONE [Concomitant]
  14. CHLORTHALIDONE [Concomitant]
  15. DILTIAZEM [Concomitant]
  16. DARBEPOETIN (DARBEPOETIN ALFA) [Concomitant]
  17. VITAMIN D [Concomitant]
  18. CALCIUM (CALCIUM) [Concomitant]
  19. AMLODIPINE [Concomitant]
  20. FUROSEMIDE (FUROSEMIDE) [Concomitant]
  21. CALCIUM CARBONATE (CALCIUM CARBONATE) [Concomitant]
  22. ALFACALCIDOL (ALFALCALCIDOL) [Concomitant]
  23. CALCIUM (CALCIUM) [Concomitant]

REACTIONS (6)
  - DIALYSIS [None]
  - DISEASE PROGRESSION [None]
  - MULTIPLE MYELOMA [None]
  - NEPHROTIC SYNDROME [None]
  - PERIPHERAL SENSORY NEUROPATHY [None]
  - RENAL FAILURE [None]
